FAERS Safety Report 18820106 (Version 1)
Quarter: 2021Q1

REPORT INFORMATION
  Report Type: Spontaneous
  Country: US (occurrence: US)
  Receive Date: 20210202
  Receipt Date: 20210202
  Transmission Date: 20210419
  Serious: No
  Sender: FDA-Public Use
  Company Number: US-ASTRAZENECA-2021A009639

PATIENT
  Age: 25931 Day
  Sex: Female
  Weight: 84.4 kg

DRUGS (3)
  1. BYDUREON BCISE [Suspect]
     Active Substance: EXENATIDE
     Route: 058
     Dates: start: 20210114
  2. BYDUREON [Suspect]
     Active Substance: EXENATIDE
     Route: 058
  3. VICTOZA [Concomitant]
     Active Substance: LIRAGLUTIDE

REACTIONS (5)
  - Glycosylated haemoglobin increased [Not Recovered/Not Resolved]
  - Device issue [Unknown]
  - Injection site mass [Recovered/Resolved]
  - Blood glucose increased [Not Recovered/Not Resolved]
  - Injection site extravasation [Recovered/Resolved]

NARRATIVE: CASE EVENT DATE: 20210114
